FAERS Safety Report 25648735 (Version 2)
Quarter: 2025Q3

REPORT INFORMATION
  Report Type: Spontaneous
  Country: US (occurrence: US)
  Receive Date: 20250806
  Receipt Date: 20250822
  Transmission Date: 20251021
  Serious: Yes (Death, Life-Threatening, Hospitalization)
  Sender: TEVA
  Company Number: US-TEVA-VS-3358623

PATIENT
  Age: 72 Year
  Sex: Female

DRUGS (1)
  1. PREDNISONE [Suspect]
     Active Substance: PREDNISONE
     Indication: Pulmonary alveolar haemorrhage
     Route: 065

REACTIONS (10)
  - Disseminated mucormycosis [Fatal]
  - Hyperglycaemic hyperosmolar nonketotic syndrome [Recovering/Resolving]
  - Renal failure [Unknown]
  - Lactic acidosis [Fatal]
  - Acute kidney injury [Unknown]
  - Disseminated aspergillosis [Fatal]
  - Respiratory failure [Unknown]
  - Shock [Fatal]
  - Systemic candida [Fatal]
  - Encephalopathy [Unknown]
